FAERS Safety Report 6329073-6 (Version None)
Quarter: 2009Q3

REPORT INFORMATION
  Report Type: 
  Country: None (occurrence: None)
  Receive Date: 20090826
  Receipt Date: 20090820
  Transmission Date: 20100115
  Serious: Yes (Other)
  Sender: FDA-Public Use
  Company Number: PHHY2009MX00979

PATIENT
  Sex: Female

DRUGS (2)
  1. ACLASTA [Suspect]
     Indication: OSTEOPOROSIS
     Dosage: 5 MG/100 ML
     Dates: start: 20080130
  2. ACLASTA [Suspect]
     Dosage: 5 MG/100 ML
     Dates: start: 20090601

REACTIONS (4)
  - HIATUS HERNIA [None]
  - OESOPHAGOGASTRIC FUNDOPLASTY [None]
  - SPINAL OSTEOARTHRITIS [None]
  - SPONDYLOLISTHESIS [None]
